FAERS Safety Report 20019819 (Version 2)
Quarter: 2021Q4

REPORT INFORMATION
  Report Type: Report from Study
  Country: CA (occurrence: CA)
  Receive Date: 20211101
  Receipt Date: 20211115
  Transmission Date: 20220303
  Serious: Yes (Other)
  Sender: FDA-Public Use
  Company Number: CA-KOREA IPSEN Pharma-2021-26662

PATIENT
  Age: 77 Year
  Sex: Female

DRUGS (3)
  1. LANREOTIDE ACETATE [Suspect]
     Active Substance: LANREOTIDE ACETATE
     Indication: Neuroendocrine tumour
     Dosage: 120 MG EVERY FOUR WEEKS
     Route: 058
     Dates: start: 20210512, end: 2021
  2. OMEPRAZOLE [Concomitant]
     Active Substance: OMEPRAZOLE
     Dosage: 20 MG DIE
  3. SYNTHROID [Concomitant]
     Active Substance: LEVOTHYROXINE SODIUM
     Dosage: 0.1 MG DIE

REACTIONS (4)
  - Feeling abnormal [Not Recovered/Not Resolved]
  - Disease progression [Not Recovered/Not Resolved]
  - Malaise [Unknown]
  - Illness [Not Recovered/Not Resolved]

NARRATIVE: CASE EVENT DATE: 20210101
